FAERS Safety Report 21315097 (Version 2)
Quarter: 2022Q4

REPORT INFORMATION
  Report Type: Spontaneous
  Country: GB (occurrence: GB)
  Receive Date: 20220909
  Receipt Date: 20221004
  Transmission Date: 20230113
  Serious: Yes (Other)
  Sender: FDA-Public Use
  Company Number: GB-BAXTER-2022BAX018896

PATIENT
  Age: 40 Year
  Sex: Female

DRUGS (3)
  1. BUPIVACAINE [Interacting]
     Active Substance: BUPIVACAINE
     Indication: Spinal anaesthesia
     Dosage: 13 MG, ADMINISTERED AT L4-5, HYPERBARIC
     Route: 037
  2. MORPHINE [Interacting]
     Active Substance: MORPHINE
     Indication: Spinal anaesthesia
     Dosage: 100 UG, PRESERVATIVE-FREE, ADMINISTERED AT L4-5
     Route: 037
  3. FENTANYL [Interacting]
     Active Substance: FENTANYL
     Indication: Spinal anaesthesia
     Dosage: 15 UG, ADMINISTERED AT L4-5
     Route: 037

REACTIONS (2)
  - Myoclonus [Recovered/Resolved]
  - Drug interaction [Recovered/Resolved]
